FAERS Safety Report 8094120-0 (Version None)
Quarter: 2012Q1

REPORT INFORMATION
  Report Type: 
  Country: None (occurrence: None)
  Receive Date: 20120130
  Receipt Date: 20120130
  Transmission Date: 20120608
  Serious: Yes (Other)
  Sender: FDA-Public Use
  Company Number: None

PATIENT
  Age: 35 Year
  Sex: Male
  Weight: 99.79 kg

DRUGS (3)
  1. CYMBALTA [Suspect]
     Indication: POST CONCUSSION SYNDROME
     Dosage: 30MG
     Route: 048
  2. CYMBALTA [Suspect]
     Indication: ANXIETY
     Dosage: 30MG
     Route: 048
  3. CYMBALTA [Suspect]
     Indication: DEPRESSION
     Dosage: 30MG
     Route: 048

REACTIONS (10)
  - NAUSEA [None]
  - HEADACHE [None]
  - HEARING IMPAIRED [None]
  - BIPOLAR I DISORDER [None]
  - WITHDRAWAL SYNDROME [None]
  - VERTIGO [None]
  - DIZZINESS [None]
  - MOOD SWINGS [None]
  - PARAESTHESIA [None]
  - ANXIETY [None]
